FAERS Safety Report 10869830 (Version 1)
Quarter: 2015Q1

REPORT INFORMATION
  Report Type: Spontaneous
  Country: DE (occurrence: DE)
  Receive Date: 20150226
  Receipt Date: 20150226
  Transmission Date: 20150721
  Serious: Yes (Hospitalization, Other)
  Sender: FDA-Public Use
  Company Number: DE-RANBAXY-2013R1-72786

PATIENT
  Age: 17 Year
  Sex: Male

DRUGS (2)
  1. RISPERIDONE. [Suspect]
     Active Substance: RISPERIDONE
     Indication: SCHIZOPHRENIA, PARANOID TYPE
     Dosage: 0.5 MG, DAILY GRADUALLY TITRATED TO 4 MG DAY
     Route: 065
  2. RISPERIDONE. [Suspect]
     Active Substance: RISPERIDONE
     Indication: SCHIZOPHRENIA, PARANOID TYPE
     Dosage: 4 MG, DAILY
     Route: 065

REACTIONS (5)
  - Ejaculation failure [Recovered/Resolved]
  - Dysuria [Recovered/Resolved]
  - Bladder obstruction [Recovered/Resolved]
  - Treatment noncompliance [Recovered/Resolved]
  - Disease recurrence [Unknown]
